FAERS Safety Report 5517959-1 (Version None)
Quarter: 2007Q4

REPORT INFORMATION
  Report Type: 
  Country: None (occurrence: None)
  Receive Date: 20071115
  Receipt Date: 20071108
  Transmission Date: 20080405
  Serious: Yes (Hospitalization, Other)
  Sender: FDA-Public Use
  Company Number: PHHO2007CA08683

PATIENT
  Age: 83 Year
  Sex: Male

DRUGS (13)
  1. AMN107 [Suspect]
     Indication: CHRONIC MYELOID LEUKAEMIA
     Dosage: 400 MG, BID
     Route: 048
     Dates: start: 20070515, end: 20070518
  2. ASPIRIN [Concomitant]
  3. NORVASC [Concomitant]
  4. ALTACE [Concomitant]
  5. LOPRESSOR [Concomitant]
  6. LASIX [Concomitant]
  7. DIABETA [Concomitant]
  8. APO-CAL [Concomitant]
  9. ALLOPURINOL [Concomitant]
  10. ZOCOR [Concomitant]
  11. CARDURA [Concomitant]
  12. NITRODUR II [Concomitant]
  13. ARANESP [Concomitant]

REACTIONS (4)
  - CHEST PAIN [None]
  - MYOCARDIAL INFARCTION [None]
  - PERICARDITIS [None]
  - STENT PLACEMENT [None]
